FAERS Safety Report 24826316 (Version 1)
Quarter: 2025Q1

REPORT INFORMATION
  Report Type: Spontaneous
  Country: US (occurrence: US)
  Receive Date: 20250109
  Receipt Date: 20250109
  Transmission Date: 20250409
  Serious: Yes (Other)
  Sender: COOPERSURGICAL
  Company Number: US-COOPERSURGICAL, INC.-US-2024CPS000022

PATIENT
  Age: 37 Year
  Sex: Female
  Weight: 63.492 kg

DRUGS (1)
  1. PARAGARD T 380A [Suspect]
     Active Substance: COPPER
     Indication: Contraception
     Route: 015
     Dates: start: 201809, end: 20231226

REACTIONS (11)
  - Ectopic pregnancy with contraceptive device [Recovered/Resolved]
  - Complication of device removal [Recovered/Resolved]
  - Illness [Unknown]
  - Device issue [Recovered/Resolved]
  - Post procedural haemorrhage [Recovering/Resolving]
  - Fatigue [Recovering/Resolving]
  - Depressed mood [Recovering/Resolving]
  - Economic problem [Unknown]
  - Haemorrhage in pregnancy [Unknown]
  - Procedural pain [Recovered/Resolved]
  - Drug ineffective [Unknown]

NARRATIVE: CASE EVENT DATE: 20231201
